FAERS Safety Report 19203612 (Version 17)
Quarter: 2025Q3

REPORT INFORMATION
  Report Type: Report from Study
  Country: US (occurrence: US)
  Receive Date: 20210430
  Receipt Date: 20250721
  Transmission Date: 20251020
  Serious: Yes (Other)
  Sender: TAKEDA
  Company Number: US-TAKEDA-US201934697

PATIENT
  Sex: Female
  Weight: 74 kg

DRUGS (31)
  1. HUMAN IMMUNOGLOBULIN G\HYALURONIDASE RECOMBINANT HUMAN [Suspect]
     Active Substance: HUMAN IMMUNOGLOBULIN G\HYALURONIDASE (HUMAN RECOMBINANT)
     Indication: Primary immunodeficiency syndrome
     Dosage: 35 GRAM, Q3WEEKS
     Dates: start: 20170117
  2. HUMAN IMMUNOGLOBULIN G\HYALURONIDASE RECOMBINANT HUMAN [Suspect]
     Active Substance: HUMAN IMMUNOGLOBULIN G\HYALURONIDASE (HUMAN RECOMBINANT)
     Indication: Secondary immunodeficiency
     Dosage: 40 GRAM, Q4WEEKS
     Dates: start: 20170118
  3. HUMAN IMMUNOGLOBULIN G\HYALURONIDASE RECOMBINANT HUMAN [Suspect]
     Active Substance: HUMAN IMMUNOGLOBULIN G\HYALURONIDASE (HUMAN RECOMBINANT)
     Indication: Immunodeficiency common variable
     Dosage: 40 GRAM, Q4WEEKS
     Dates: start: 20220823
  4. HUMAN IMMUNOGLOBULIN G\HYALURONIDASE RECOMBINANT HUMAN [Suspect]
     Active Substance: HUMAN IMMUNOGLOBULIN G\HYALURONIDASE (HUMAN RECOMBINANT)
     Dosage: 40 GRAM, Q4WEEKS
  5. HUMAN IMMUNOGLOBULIN G\HYALURONIDASE RECOMBINANT HUMAN [Suspect]
     Active Substance: HUMAN IMMUNOGLOBULIN G\HYALURONIDASE (HUMAN RECOMBINANT)
     Dosage: 40 GRAM, MONTHLY
  6. HUMAN IMMUNOGLOBULIN G\HYALURONIDASE RECOMBINANT HUMAN [Suspect]
     Active Substance: HUMAN IMMUNOGLOBULIN G\HYALURONIDASE (HUMAN RECOMBINANT)
     Dosage: UNK UNK, MONTHLY
  7. AZELASTINE [Concomitant]
     Active Substance: AZELASTINE
  8. ALBUTEROL SULFATE [Concomitant]
     Active Substance: ALBUTEROL SULFATE
  9. FLUTICASONE PROPIONATE [Concomitant]
     Active Substance: FLUTICASONE PROPIONATE
  10. HYDROXYCHLOROQUINE SULFATE [Concomitant]
     Active Substance: HYDROXYCHLOROQUINE SULFATE
  11. CELECOXIB [Concomitant]
     Active Substance: CELECOXIB
  12. IRON [Concomitant]
     Active Substance: IRON
  13. SEREVENT DISKUS [Concomitant]
     Active Substance: SALMETEROL XINAFOATE
  14. PANTOPRAZOLE [Concomitant]
     Active Substance: PANTOPRAZOLE
  15. TOBRAMYCIN AND DEXAMETHASONE [Concomitant]
     Active Substance: DEXAMETHASONE\TOBRAMYCIN
  16. VITAMIN D3 [Concomitant]
     Active Substance: CHOLECALCIFEROL
  17. Omega 9 fatty acids;Omega-3 fatty acids;Omega-6 fatty acids [Concomitant]
  18. NASALCROM [Concomitant]
     Active Substance: CROMOLYN SODIUM
  19. AMOXICILLIN [Concomitant]
     Active Substance: AMOXICILLIN
  20. SIMVASTATIN [Concomitant]
     Active Substance: SIMVASTATIN
  21. VITAMIN D [Concomitant]
     Active Substance: VITAMIN D NOS
  22. NASACORT [Concomitant]
     Active Substance: TRIAMCINOLONE ACETONIDE
  23. FEXOFENADINE [Concomitant]
     Active Substance: FEXOFENADINE HYDROCHLORIDE
  24. MUCINEX [Concomitant]
     Active Substance: GUAIFENESIN
  25. ACIPHEX [Concomitant]
     Active Substance: RABEPRAZOLE SODIUM
  26. THERATEARS [Concomitant]
     Active Substance: CARBOXYMETHYLCELLULOSE SODIUM
  27. GAVISCON [Concomitant]
     Active Substance: ALUMINUM HYDROXIDE\MAGNESIUM CARBONATE
  28. PANTOPRAZOLE SODIUM [Concomitant]
     Active Substance: PANTOPRAZOLE SODIUM
  29. AZELASTINE HYDROCHLORIDE [Concomitant]
     Active Substance: AZELASTINE HYDROCHLORIDE
  30. FEXOFENADINE HYDROCHLORIDE [Concomitant]
     Active Substance: FEXOFENADINE HYDROCHLORIDE
  31. Omega [Concomitant]

REACTIONS (24)
  - Lumbar vertebral fracture [Unknown]
  - Systemic lupus erythematosus [Unknown]
  - Pulmonary congestion [Unknown]
  - Herpes zoster [Unknown]
  - Product dose omission issue [Unknown]
  - Injection site reaction [Unknown]
  - Weight fluctuation [Unknown]
  - Arthropod bite [Unknown]
  - Arthritis [Unknown]
  - Allergy to arthropod bite [Unknown]
  - Somnolence [Unknown]
  - Pain [Unknown]
  - Ear infection [Unknown]
  - Injection site vesicles [Unknown]
  - Skin indentation [Unknown]
  - Insurance issue [Recovered/Resolved]
  - Tinea infection [Recovering/Resolving]
  - Infusion site irritation [Unknown]
  - Memory impairment [Unknown]
  - Sinus disorder [Unknown]
  - Abdominal distension [Unknown]
  - Back pain [Unknown]
  - Arthralgia [Unknown]
  - Headache [Recovered/Resolved]
